FAERS Safety Report 6066514-6 (Version None)
Quarter: 2009Q1

REPORT INFORMATION
  Report Type: 
  Country: None (occurrence: None)
  Receive Date: 20090205
  Receipt Date: 20090128
  Transmission Date: 20090719
  Serious: Yes (Other)
  Sender: FDA-Public Use
  Company Number: ES-BAXTER-2009BH001575

PATIENT
  Sex: Male

DRUGS (5)
  1. FEIBA VH IMMUNO [Suspect]
     Route: 042
     Dates: start: 20090101, end: 20090101
  2. FEIBA VH IMMUNO [Suspect]
     Indication: HAEMORRHAGE
     Route: 042
     Dates: start: 20090101, end: 20090101
  3. FEIBA VH IMMUNO [Suspect]
     Route: 065
  4. FEIBA VH IMMUNO [Suspect]
     Route: 065
  5. HMG COA REDUCTASE INHIBITORS [Suspect]
     Indication: HYPERCHOLESTEROLAEMIA
     Route: 065

REACTIONS (1)
  - CHEST PAIN [None]
